FAERS Safety Report 6318292-0 (Version None)
Quarter: 2009Q3

REPORT INFORMATION
  Report Type: 
  Country: None (occurrence: None)
  Receive Date: 20090821
  Receipt Date: 20090817
  Transmission Date: 20100115
  Serious: Yes (Other)
  Sender: FDA-Public Use
  Company Number: US-AVENTIS-200916490US

PATIENT
  Sex: Female
  Weight: 84.09 kg

DRUGS (13)
  1. LANTUS [Suspect]
     Dosage: DOSE: 45 UNITS IN AM AND 20 UNITS IN PM
     Route: 058
  2. OPTICLIK (INSULIN INJECTION PEN) [Suspect]
  3. LIPITOR [Concomitant]
  4. ESTROGEN [Concomitant]
     Indication: HORMONE REPLACEMENT THERAPY
     Dosage: DOSE: 1 TABLET
  5. HYDROCHLOROTHIAZIDE [Concomitant]
  6. HYDROCHLOROTHIAZIDE [Concomitant]
  7. ASPIRIN [Concomitant]
  8. METOPROLOL [Concomitant]
  9. OS-CAL D [Concomitant]
     Dosage: DOSE QUANTITY: 1
  10. COMBIGAN [Concomitant]
  11. FML FORTE [Concomitant]
  12. ADVIL [Concomitant]
     Dosage: DOSE QUANTITY: 1
  13. CENTRUM SILVER                     /01292501/ [Concomitant]
     Dosage: DOSE: ONE

REACTIONS (1)
  - CORNEAL TRANSPLANT [None]
